FAERS Safety Report 5315336-X (Version None)
Quarter: 2007Q2

REPORT INFORMATION
  Report Type: 
  Country: None (occurrence: None)
  Receive Date: 20070427
  Receipt Date: 20070419
  Transmission Date: 20071010
  Serious: Yes (Hospitalization)
  Sender: FDA-Public Use
  Company Number: TAP2007Q00527

PATIENT
  Age: 57 Year
  Sex: Male
  Weight: 124.7 kg

DRUGS (11)
  1. PREVACID [Suspect]
     Indication: GASTROOESOPHAGEAL REFLUX DISEASE
     Dosage: 30 MG, 1 IN 1 D, ORAL
     Route: 048
     Dates: start: 20070316, end: 20070318
  2. PRINIVIL [Concomitant]
  3. TOPAMAX [Concomitant]
  4. ASPIRIN [Concomitant]
  5. LIPITOR [Concomitant]
  6. BYETTA [Concomitant]
  7. GLUCOPHAGE [Concomitant]
  8. GLUCOTROL [Concomitant]
  9. ACTOS [Concomitant]
  10. PLAVIX [Concomitant]
  11. PEPCID [Concomitant]

REACTIONS (14)
  - CONDITION AGGRAVATED [None]
  - DEHYDRATION [None]
  - DIABETES MELLITUS [None]
  - DIZZINESS [None]
  - FALL [None]
  - INFLUENZA LIKE ILLNESS [None]
  - LOSS OF CONSCIOUSNESS [None]
  - NEUROPATHY [None]
  - OEDEMA PERIPHERAL [None]
  - RASH GENERALISED [None]
  - RENAL FAILURE [None]
  - SKIN EXFOLIATION [None]
  - SKIN LACERATION [None]
  - TENDERNESS [None]
